FAERS Safety Report 5486075-X (Version None)
Quarter: 2007Q4

REPORT INFORMATION
  Report Type: 
  Country: None (occurrence: None)
  Receive Date: 20071015
  Receipt Date: 20071003
  Transmission Date: 20080405
  Serious: Yes (Other)
  Sender: FDA-Public Use
  Company Number: US-PFIZER INC-2007084398

PATIENT
  Sex: Female
  Weight: 54.545 kg

DRUGS (2)
  1. CHANTIX [Suspect]
     Indication: SMOKING CESSATION THERAPY
     Route: 048
     Dates: start: 20070814, end: 20070919
  2. LAMICTAL [Interacting]
     Indication: BIPOLAR DISORDER

REACTIONS (10)
  - AMNESIA [None]
  - DEPRESSION [None]
  - DRUG INTERACTION [None]
  - HALLUCINATION [None]
  - MENTAL DISORDER [None]
  - NAUSEA [None]
  - NIGHTMARE [None]
  - SCREAMING [None]
  - SOMNOLENCE [None]
  - VOMITING [None]
